FAERS Safety Report 16156857 (Version 2)
Quarter: 2019Q2

REPORT INFORMATION
  Report Type: Report from Study
  Country: US (occurrence: US)
  Receive Date: 20190404
  Receipt Date: 20190425
  Transmission Date: 20190711
  Serious: Yes (Hospitalization, Other)
  Sender: FDA-Public Use
  Company Number: US-ASTELLAS-2019US006933

PATIENT
  Sex: Male

DRUGS (1)
  1. ENZALUTAMIDE [Suspect]
     Active Substance: ENZALUTAMIDE
     Indication: PROSTATE CANCER
     Route: 048
     Dates: start: 20181128

REACTIONS (10)
  - Dysarthria [Unknown]
  - Asthenia [Unknown]
  - Fatigue [Unknown]
  - Confusional state [Unknown]
  - Abdominal distension [Unknown]
  - Ammonia increased [Unknown]
  - Mobility decreased [Unknown]
  - Decreased appetite [Unknown]
  - Dehydration [Unknown]
  - Hepatic cirrhosis [Unknown]
